FAERS Safety Report 5350678-3 (Version None)
Quarter: 2007Q2

REPORT INFORMATION
  Report Type: 
  Country: None (occurrence: None)
  Receive Date: 20070608
  Receipt Date: 20070604
  Transmission Date: 20071010
  Serious: Yes (Other)
  Sender: FDA-Public Use
  Company Number: JP-AVENTIS-200711143JP

PATIENT
  Age: 74 Year
  Sex: Male

DRUGS (7)
  1. AMARYL [Suspect]
     Indication: DIABETES MELLITUS
     Route: 048
     Dates: start: 20070219
  2. SAW PALMETTO EXTRACT [Suspect]
  3. PREDNISOLONE [Concomitant]
  4. SOLETON [Concomitant]
  5. VOGLIBOSE [Concomitant]
  6. ACTOS [Concomitant]
  7. FASTIC [Concomitant]
     Dates: end: 20070219

REACTIONS (1)
  - EOSINOPHILIC PNEUMONIA [None]
